FAERS Safety Report 9056517 (Version 11)
Quarter: 2014Q2

REPORT INFORMATION
  Report Type: Spontaneous
  Country: US (occurrence: US)
  Receive Date: 20130204
  Receipt Date: 20140505
  Transmission Date: 20141212
  Serious: Yes (Death, Hospitalization)
  Sender: FDA-Public Use
  Company Number: US-GLAXOSMITHKLINE-A0993151A

PATIENT
  Age: 47 Year
  Sex: Female

DRUGS (4)
  1. FLOLAN [Suspect]
     Indication: PULMONARY ARTERIAL HYPERTENSION
     Dosage: 73NGKM CONTINUOUS
     Route: 065
     Dates: start: 20071206
  2. LETAIRIS [Concomitant]
  3. REVATIO [Concomitant]
  4. WARFARIN [Concomitant]

REACTIONS (12)
  - Pneumonia [Unknown]
  - Catheter site pruritus [Unknown]
  - Injection site irritation [Unknown]
  - Injection site discolouration [Unknown]
  - Investigation [Unknown]
  - Pulmonary hypertension [Unknown]
  - Diagnostic procedure [Not Recovered/Not Resolved]
  - Dyspnoea [Unknown]
  - Cough [Not Recovered/Not Resolved]
  - Medical device complication [Unknown]
  - Dyspnoea [Not Recovered/Not Resolved]
  - Death [Fatal]
